FAERS Safety Report 15072984 (Version 2)
Quarter: 2018Q3

REPORT INFORMATION
  Report Type: Spontaneous
  Country: JP (occurrence: JP)
  Receive Date: 20180627
  Receipt Date: 20180731
  Transmission Date: 20181010
  Serious: Yes (Death, Other)
  Sender: FDA-Public Use
  Company Number: JP-009507513-1806JPN001282J

PATIENT
  Age: 70 Year
  Sex: Male
  Weight: 58.8 kg

DRUGS (3)
  1. JANUVIA [Concomitant]
     Active Substance: SITAGLIPTIN PHOSPHATE
     Dosage: UNK
     Route: 048
  2. MEROPEN [Concomitant]
     Active Substance: MEROPENEM
     Indication: PATHOGEN RESISTANCE
     Dosage: UNK
     Route: 041
     Dates: start: 20180525, end: 20180610
  3. KEYTRUDA [Suspect]
     Active Substance: PEMBROLIZUMAB
     Indication: NON-SMALL CELL LUNG CANCER
     Dosage: 200 MG, Q3W
     Route: 041
     Dates: start: 20180530, end: 20180530

REACTIONS (6)
  - Malignant neoplasm progression [Unknown]
  - Feeling abnormal [Unknown]
  - Dyspnoea [Unknown]
  - Pneumonia [Unknown]
  - Pyrexia [Unknown]
  - Cardiac arrest [Fatal]

NARRATIVE: CASE EVENT DATE: 20180604
